FAERS Safety Report 9702151 (Version 2)
Quarter: 2014Q1

REPORT INFORMATION
  Report Type: Spontaneous
  Country: US (occurrence: US)
  Receive Date: 20131121
  Receipt Date: 20140109
  Transmission Date: 20141002
  Serious: No
  Sender: FDA-Public Use
  Company Number: US-009507513-1311USA002567

PATIENT
  Sex: Female
  Weight: 98.87 kg

DRUGS (7)
  1. PEGINTRON [Suspect]
     Dosage: INJECT 0.4 ML, QW, AS DIRECTED
  2. RIBAPAK [Suspect]
     Dosage: 800/DAY
  3. VITAMINS (UNSPECIFIED) [Concomitant]
     Route: 048
  4. IRON (UNSPECIFIED) [Concomitant]
     Route: 048
  5. ROGAINE SOL 2% [Concomitant]
  6. ZYRTEC [Concomitant]
     Route: 048
  7. VENTOLIN HFA AER [Concomitant]

REACTIONS (1)
  - Stomatitis [Recovered/Resolved]
